FAERS Safety Report 5995818-8 (Version None)
Quarter: 2008Q4

REPORT INFORMATION
  Report Type: 
  Country: None (occurrence: None)
  Receive Date: 20081212
  Receipt Date: 20081201
  Transmission Date: 20090506
  Serious: Yes (Hospitalization)
  Sender: FDA-Public Use
  Company Number: IE-PFIZER INC-2008152035

PATIENT

DRUGS (1)
  1. LYRICA [Suspect]
     Route: 048

REACTIONS (1)
  - GASTROINTESTINAL TUBE INSERTION [None]
